FAERS Safety Report 9412255 (Version 1)
Quarter: 2013Q3

REPORT INFORMATION
  Report Type: Spontaneous
  Country: US (occurrence: None)
  Receive Date: 20130719
  Receipt Date: 20130719
  Transmission Date: 20140515
  Serious: Yes (Hospitalization)
  Sender: FDA-Public Use
  Company Number: None

PATIENT
  Age: 62 Year
  Sex: Female
  Weight: 81.6 kg

DRUGS (2)
  1. XARELTO [Suspect]
     Indication: DEEP VEIN THROMBOSIS
     Dosage: PRIOR TO PRESENTATION (UNKNOWN)
     Route: 048
  2. XARELTO [Suspect]
     Indication: PULMONARY EMBOLISM
     Dosage: PRIOR TO PRESENTATION (UNKNOWN)
     Route: 048

REACTIONS (1)
  - Rectal haemorrhage [None]
